FAERS Safety Report 8427180-5 (Version None)
Quarter: 2012Q2

REPORT INFORMATION
  Report Type: 
  Country: None (occurrence: None)
  Receive Date: 20120601
  Receipt Date: 20120521
  Transmission Date: 20120825
  Serious: Yes (Other)
  Sender: FDA-Public Use
  Company Number: US-JNJFOC-20090100211

PATIENT
  Age: 65 Year
  Sex: Female
  Weight: 113.3 kg

DRUGS (4)
  1. DECITABINE [Suspect]
     Indication: ACUTE MYELOID LEUKAEMIA
     Dosage: 20 MG/M2, 1 IN 1 DAY, INTRAVENOUS
     Route: 042
     Dates: start: 20081002
  2. DECITABINE [Suspect]
     Indication: ACUTE MYELOID LEUKAEMIA
     Dosage: 20 MG/M2, 1 IN 1 DAY, INTRAVENOUS
     Route: 042
     Dates: start: 20081201, end: 20081205
  3. VELCADE [Suspect]
     Indication: ACUTE MYELOID LEUKAEMIA
     Dosage: 1.3 MG/M2, 1 IN 1 DAY, INTRAVENOUS
     Route: 042
     Dates: start: 20081002
  4. VELCADE [Suspect]
     Indication: ACUTE MYELOID LEUKAEMIA
     Dosage: 1.3 MG/M2, 1 IN 1 DAY, INTRAVENOUS
     Route: 042
     Dates: end: 20081215

REACTIONS (2)
  - DEEP VEIN THROMBOSIS [None]
  - PAIN IN EXTREMITY [None]
